FAERS Safety Report 23702572 (Version 1)
Quarter: 2024Q2

REPORT INFORMATION
  Report Type: Spontaneous
  Country: SG (occurrence: SG)
  Receive Date: 20240403
  Receipt Date: 20240403
  Transmission Date: 20240716
  Serious: Yes (Hospitalization, Other)
  Sender: FDA-Public Use
  Company Number: SG-009507513-2403SGP009081

PATIENT
  Age: 42 Year
  Sex: Female

DRUGS (1)
  1. PEMBROLIZUMAB [Suspect]
     Active Substance: PEMBROLIZUMAB
     Indication: Melanoma recurrent
     Dosage: UNK
     Dates: start: 2022

REACTIONS (1)
  - Granuloma [Recovered/Resolved]

NARRATIVE: CASE EVENT DATE: 20221001
